FAERS Safety Report 11596523 (Version 1)
Quarter: 2015Q4

REPORT INFORMATION
  Report Type: Report from Study
  Country: US (occurrence: US)
  Receive Date: 20151006
  Receipt Date: 20151006
  Transmission Date: 20160304
  Serious: Yes (Hospitalization)
  Sender: FDA-Public Use
  Company Number: US-ABBVIE-15K-163-1432419-00

PATIENT
  Age: 45 Year
  Sex: Female
  Weight: 99.88 kg

DRUGS (5)
  1. VITAMIN B12 [Concomitant]
     Active Substance: CYANOCOBALAMIN
     Indication: IMMUNE SYSTEM DISORDER
  2. HUMIRA [Suspect]
     Active Substance: ADALIMUMAB
     Indication: CROHN^S DISEASE
     Dosage: LOADING DOSE
     Route: 058
     Dates: start: 201410, end: 201410
  3. HUMIRA [Suspect]
     Active Substance: ADALIMUMAB
     Dosage: LOADING DOSE, 2 WEEKS AFTER 160 MG DOSE
     Route: 058
     Dates: start: 2014, end: 2014
  4. HUMIRA [Suspect]
     Active Substance: ADALIMUMAB
     Dosage: 2 WEEKS AFTER 80 MG DOSE
     Route: 058
     Dates: start: 201410, end: 20150821
  5. HUMIRA [Suspect]
     Active Substance: ADALIMUMAB
     Route: 058
     Dates: start: 20150904

REACTIONS (12)
  - Oropharyngeal pain [Recovered/Resolved]
  - Bronchitis [Recovered/Resolved]
  - Back pain [Recovering/Resolving]
  - Abdominal distension [Not Recovered/Not Resolved]
  - Restlessness [Recovered/Resolved]
  - Abdominal hernia [Recovering/Resolving]
  - Nephrolithiasis [Recovered/Resolved]
  - Vitamin D decreased [Unknown]
  - Weight increased [Not Recovered/Not Resolved]
  - Sinusitis [Recovered/Resolved]
  - Abdominal distension [Recovering/Resolving]
  - Peripheral swelling [Recovered/Resolved]

NARRATIVE: CASE EVENT DATE: 2015
